FAERS Safety Report 10230838 (Version 1)
Quarter: 2014Q2

REPORT INFORMATION
  Report Type: Spontaneous
  Country: US (occurrence: US)
  Receive Date: 20140611
  Receipt Date: 20140611
  Transmission Date: 20141212
  Serious: No
  Sender: FDA-Public Use
  Company Number: US-BAYER-2014-085436

PATIENT
  Sex: Female

DRUGS (3)
  1. ULTRAVIST [Suspect]
     Indication: COMPUTERISED TOMOGRAM THORAX
     Dosage: 100 ML, ONCE
     Dates: start: 2013
  2. ULTRAVIST [Suspect]
     Indication: ANGIOGRAM
  3. BENADRYL [Concomitant]
     Indication: URTICARIA
     Route: 048

REACTIONS (1)
  - Urticaria [Recovered/Resolved]
